FAERS Safety Report 20591671 (Version 3)
Quarter: 2023Q1

REPORT INFORMATION
  Report Type: Report from Study
  Country: US (occurrence: US)
  Receive Date: 20220314
  Receipt Date: 20230309
  Transmission Date: 20230417
  Serious: No
  Sender: FDA-Public Use
  Company Number: US-NOVARTISTESTPH-NVSC2022US056747

PATIENT
  Sex: Female

DRUGS (1)
  1. COSENTYX [Suspect]
     Active Substance: SECUKINUMAB
     Indication: Paternal exposure during pregnancy
     Dosage: UNK (EXPOSURE VIA PARTNER)
     Route: 050

REACTIONS (2)
  - Paternal exposure during pregnancy [Unknown]
  - Normal newborn [Unknown]
